FAERS Safety Report 8690879 (Version 3)
Quarter: 2012Q4

REPORT INFORMATION
  Report Type: 
  Country: PT (occurrence: PT)
  Receive Date: 20120730
  Receipt Date: 20120907
  Transmission Date: 20130627
  Serious: No
  Sender: FDA-Public Use
  Company Number: PT-AMGEN-PRTSP2012038226

PATIENT
  Age: 56 Year
  Sex: Male

DRUGS (2)
  1. ENBREL [Suspect]
     Dosage: 50 mg, weekly
     Route: 058
     Dates: start: 20120523, end: 20120613
  2. ENBREL [Suspect]
     Dosage: UNK UNK, qwk
     Route: 058

REACTIONS (4)
  - Malaise [Recovered/Resolved]
  - Hyperhidrosis [Recovered/Resolved]
  - Syncope [Recovered/Resolved]
  - Product quality issue [Recovered/Resolved]
